FAERS Safety Report 19416669 (Version 1)
Quarter: 2021Q2

REPORT INFORMATION
  Report Type: Spontaneous
  Country: US (occurrence: US)
  Receive Date: 20210614
  Receipt Date: 20210614
  Transmission Date: 20210717
  Serious: No
  Sender: FDA-Public Use
  Company Number: US-GALDERMA-US2020052169

PATIENT
  Age: 35 Year
  Sex: Female

DRUGS (4)
  1. METHOTREXATE. [Concomitant]
     Active Substance: METHOTREXATE
     Indication: CUTANEOUS T-CELL LYMPHOMA STAGE I
     Route: 065
     Dates: start: 2015, end: 2015
  2. TRIAMCINOLONE ACETONIDE. [Concomitant]
     Active Substance: TRIAMCINOLONE ACETONIDE
     Indication: CUTANEOUS T-CELL LYMPHOMA STAGE I
     Route: 030
     Dates: start: 2015, end: 2015
  3. CLOBETASOL PROPIONATE (CLOBETASOL PROPIONATE) [Suspect]
     Active Substance: CLOBETASOL PROPIONATE
     Indication: CUTANEOUS T-CELL LYMPHOMA STAGE I
     Route: 065
     Dates: start: 2015, end: 2015
  4. ACITRETIN. [Concomitant]
     Active Substance: ACITRETIN
     Indication: CUTANEOUS T-CELL LYMPHOMA STAGE I
     Route: 065
     Dates: start: 2015, end: 2015

REACTIONS (2)
  - Intentional product use issue [Recovered/Resolved]
  - Drug ineffective for unapproved indication [Recovered/Resolved]

NARRATIVE: CASE EVENT DATE: 2015
